FAERS Safety Report 24839721 (Version 1)
Quarter: 2025Q1

REPORT INFORMATION
  Report Type: Spontaneous
  Country: US (occurrence: US)
  Receive Date: 20250114
  Receipt Date: 20250114
  Transmission Date: 20250409
  Serious: Yes (Death, Hospitalization, Other)
  Sender: ADVANZ PHARMA
  Company Number: US-ADVANZ PHARMA-202412010936

PATIENT

DRUGS (16)
  1. DIGOXIN [Suspect]
     Active Substance: DIGOXIN
     Route: 048
  2. DIGOXIN [Suspect]
     Active Substance: DIGOXIN
     Route: 051
  3. CARVEDILOL [Suspect]
     Active Substance: CARVEDILOL
     Route: 048
  4. CARVEDILOL [Suspect]
     Active Substance: CARVEDILOL
     Route: 051
  5. POTASSIUM [Suspect]
     Active Substance: POTASSIUM
     Route: 048
  6. POTASSIUM [Suspect]
     Active Substance: POTASSIUM
     Route: 051
  7. CITALOPRAM [Suspect]
     Active Substance: CITALOPRAM
     Route: 048
  8. CITALOPRAM [Suspect]
     Active Substance: CITALOPRAM
     Route: 051
  9. TAMSULOSIN [Suspect]
     Active Substance: TAMSULOSIN
     Route: 048
  10. TAMSULOSIN [Suspect]
     Active Substance: TAMSULOSIN
     Route: 051
  11. INSULIN NOS [Suspect]
     Active Substance: INSULIN NOS
     Route: 048
  12. INSULIN NOS [Suspect]
     Active Substance: INSULIN NOS
     Route: 051
  13. ATORVASTATIN [Suspect]
     Active Substance: ATORVASTATIN
     Route: 048
  14. ATORVASTATIN [Suspect]
     Active Substance: ATORVASTATIN
     Route: 051
  15. SACUBITRIL\VALSARTAN [Suspect]
     Active Substance: SACUBITRIL\VALSARTAN
     Route: 048
  16. SACUBITRIL\VALSARTAN [Suspect]
     Active Substance: SACUBITRIL\VALSARTAN
     Route: 051

REACTIONS (1)
  - Completed suicide [Fatal]
